FAERS Safety Report 14547440 (Version 2)
Quarter: 2018Q1

REPORT INFORMATION
  Report Type: Spontaneous
  Country: US (occurrence: US)
  Receive Date: 20180219
  Receipt Date: 20180315
  Transmission Date: 20180509
  Serious: Yes (Hospitalization)
  Sender: FDA-Public Use
  Company Number: US-JNJFOC-20180211980

PATIENT
  Age: 74 Year
  Sex: Female
  Weight: 64 kg

DRUGS (6)
  1. BUDESONIDE. [Concomitant]
     Active Substance: BUDESONIDE
  2. ACYCLOVIR. [Concomitant]
     Active Substance: ACYCLOVIR
  3. ATORVASTATIN [Concomitant]
     Active Substance: ATORVASTATIN
  4. IMBRUVICA [Suspect]
     Active Substance: IBRUTINIB
     Indication: CHRONIC LYMPHOCYTIC LEUKAEMIA
     Route: 048
     Dates: start: 20170515, end: 20180109
  5. ALBUTEROL. [Concomitant]
     Active Substance: ALBUTEROL
  6. AMLODIPINE [Concomitant]
     Active Substance: AMLODIPINE BESYLATE

REACTIONS (3)
  - Candida infection [Unknown]
  - Staphylococcal sepsis [Recovering/Resolving]
  - Cellulitis staphylococcal [Unknown]

NARRATIVE: CASE EVENT DATE: 201801
